FAERS Safety Report 14894629 (Version 1)
Quarter: 2018Q2

REPORT INFORMATION
  Report Type: Spontaneous
  Country: DE (occurrence: DE)
  Receive Date: 20180515
  Receipt Date: 20180515
  Transmission Date: 20180711
  Serious: Yes (Congenital Anomaly, Other)
  Sender: FDA-Public Use
  Company Number: DE-ALKEM LABORATORIES LIMITED-DE-ALKEM-2018-03035

PATIENT
  Age: 1 Day
  Sex: Male
  Weight: 3 kg

DRUGS (3)
  1. QUETIAPINE FUMARATE. [Suspect]
     Active Substance: QUETIAPINE FUMARATE
     Dosage: UNK
     Route: 064
  2. CITALOPRAM [Suspect]
     Active Substance: CITALOPRAM HYDROBROMIDE
     Dosage: UNK
     Route: 064
  3. FEMIBION [Concomitant]
     Active Substance: VITAMINS
     Dosage: UNK
     Route: 064

REACTIONS (3)
  - Small for dates baby [Recovered/Resolved]
  - Foetal exposure during pregnancy [Unknown]
  - Hypospadias [Not Recovered/Not Resolved]

NARRATIVE: CASE EVENT DATE: 20170405
